FAERS Safety Report 22635444 (Version 1)
Quarter: 2023Q2

REPORT INFORMATION
  Report Type: Spontaneous
  Country: FR (occurrence: FR)
  Receive Date: 20230623
  Receipt Date: 20230623
  Transmission Date: 20230722
  Serious: Yes (Hospitalization)
  Sender: FDA-Public Use
  Company Number: None

PATIENT
  Age: 53 Year
  Sex: Male

DRUGS (8)
  1. IRINOTECAN [Suspect]
     Active Substance: IRINOTECAN
     Indication: Adenocarcinoma pancreas
     Dosage: ROA-20045000
     Route: 042
     Dates: start: 20230203, end: 20230413
  2. OXALIPLATIN [Suspect]
     Active Substance: OXALIPLATIN
     Indication: Adenocarcinoma pancreas
     Dosage: ROA-20045000
     Route: 042
     Dates: start: 20230203, end: 20230413
  3. FLUOROURACIL [Suspect]
     Active Substance: FLUOROURACIL
     Indication: Adenocarcinoma pancreas
     Dosage: ROA-20045000
     Route: 042
     Dates: start: 20230203, end: 20230413
  4. METHYLPREDNISOLONE [Concomitant]
     Active Substance: METHYLPREDNISOLONE
     Indication: Product used for unknown indication
     Dosage: ROA-20045000
     Route: 042
     Dates: start: 20230203
  5. PELMEG 6 mg solution for injection in pre-filled syringe [Concomitant]
     Indication: Product used for unknown indication
     Dosage: ROA-20066000
     Route: 058
  6. HUMALOG [Concomitant]
     Active Substance: INSULIN LISPRO
     Indication: Product used for unknown indication
     Dosage: ROA-20066000
     Route: 058
  7. LEVOLEUCOVORIN CALCIUM [Concomitant]
     Active Substance: LEVOLEUCOVORIN CALCIUM
     Indication: Product used for unknown indication
     Dosage: ROA-20045000
     Route: 042
     Dates: start: 20230203, end: 20230413
  8. ABASAGLAR 100 units/ml solution for injection in pre-filled pen [Concomitant]
     Indication: Product used for unknown indication
     Dosage: ROA-20066000
     Route: 058

REACTIONS (2)
  - Drug interaction [Recovered/Resolved]
  - Oesophagitis [Recovered/Resolved]

NARRATIVE: CASE EVENT DATE: 20230413
